FAERS Safety Report 25615418 (Version 1)
Quarter: 2025Q3

REPORT INFORMATION
  Report Type: Spontaneous
  Country: GB (occurrence: GB)
  Receive Date: 20250729
  Receipt Date: 20250729
  Transmission Date: 20251020
  Serious: Yes (Other)
  Sender: PHARMACOSMOS A/S
  Company Number: None

PATIENT
  Age: 39 Year
  Sex: Female

DRUGS (1)
  1. FERRIC DERISOMALTOSE [Suspect]
     Active Substance: FERRIC DERISOMALTOSE
     Indication: Iron deficiency
     Dates: start: 20250620, end: 20250620

REACTIONS (3)
  - Skin reaction [Not Recovered/Not Resolved]
  - Skin exfoliation [Not Recovered/Not Resolved]
  - Blister [Not Recovered/Not Resolved]

NARRATIVE: CASE EVENT DATE: 20250601
